FAERS Safety Report 8321322 (Version 3)
Quarter: 2013Q4

REPORT INFORMATION
  Report Type: Spontaneous
  Country: US (occurrence: US)
  Receive Date: 20120104
  Receipt Date: 20131107
  Transmission Date: 20140711
  Serious: Yes (Hospitalization, Other)
  Sender: FDA-Public Use
  Company Number: US-ROCHE-1027036

PATIENT
  Age: 40 Year
  Sex: Male

DRUGS (1)
  1. ACCUTANE [Suspect]
     Indication: ACNE
     Route: 065

REACTIONS (5)
  - Inflammatory bowel disease [Unknown]
  - Pyoderma gangrenosum [Unknown]
  - Colitis ulcerative [Unknown]
  - Injury [Unknown]
  - Rectal polyp [Unknown]
